FAERS Safety Report 12496836 (Version 1)
Quarter: 2016Q2

REPORT INFORMATION
  Report Type: Spontaneous
  Country: US (occurrence: US)
  Receive Date: 20160624
  Receipt Date: 20160624
  Transmission Date: 20160815
  Serious: No
  Sender: FDA-Public Use
  Company Number: US-ENDO PHARMACEUTICALS INC.-2015-005009

PATIENT
  Sex: Male
  Weight: 68.1 kg

DRUGS (1)
  1. DOXAZOSIN MESYLATE TABLETS 8 MG [Suspect]
     Active Substance: DOXAZOSIN MESYLATE
     Indication: BENIGN PROSTATIC HYPERPLASIA
     Dosage: 1/2 TABLET DAILY
     Route: 048
     Dates: end: 201512

REACTIONS (5)
  - Hypertension [Recovered/Resolved]
  - Sinus tachycardia [Recovered/Resolved]
  - Sinus arrhythmia [Recovered/Resolved]
  - Sinus bradycardia [Recovered/Resolved]
  - Palpitations [Recovered/Resolved]

NARRATIVE: CASE EVENT DATE: 2015
